FAERS Safety Report 7169294-6 (Version None)
Quarter: 2010Q4

REPORT INFORMATION
  Report Type: 
  Country: None (occurrence: None)
  Receive Date: 20101216
  Receipt Date: 20101210
  Transmission Date: 20110411
  Serious: Yes (Hospitalization)
  Sender: FDA-Public Use
  Company Number: US-AMGEN-USASP2010008709

PATIENT

DRUGS (2)
  1. ENBREL [Suspect]
     Indication: PSORIASIS
     Dosage: 50 MG, QWK
     Dates: start: 20090822
  2. INSULIN [Concomitant]
     Indication: DIABETES MELLITUS

REACTIONS (4)
  - ARTHRALGIA [None]
  - CELLULITIS [None]
  - INJECTION SITE HAEMATOMA [None]
  - KNEE ARTHROPLASTY [None]
